FAERS Safety Report 25509042 (Version 3)
Quarter: 2025Q3

REPORT INFORMATION
  Report Type: Report from Study
  Country: CA (occurrence: None)
  Receive Date: 20250703
  Receipt Date: 20250929
  Transmission Date: 20251020
  Serious: Yes (Hospitalization, Other)
  Sender: ORION
  Company Number: CA-PFIZER INC-202500131579

PATIENT
  Age: 25 Year
  Sex: Male

DRUGS (3)
  1. METHOTREXATE [Suspect]
     Active Substance: METHOTREXATE
     Indication: Crohn^s disease
     Dates: start: 202504
  2. PREDNISONE [Concomitant]
     Active Substance: PREDNISONE
     Dates: start: 202505
  3. IXIFI [Concomitant]
     Active Substance: INFLIXIMAB-QBTX
     Indication: Crohn^s disease
     Dates: start: 20250717

REACTIONS (2)
  - Crohn^s disease [Unknown]
  - Product use in unapproved indication [Unknown]

NARRATIVE: CASE EVENT DATE: 20250101
